FAERS Safety Report 6032273-6 (Version None)
Quarter: 2009Q1

REPORT INFORMATION
  Report Type: 
  Country: None (occurrence: None)
  Receive Date: 20090107
  Receipt Date: 20081226
  Transmission Date: 20090719
  Serious: Yes (Other)
  Sender: FDA-Public Use
  Company Number: 2008SP026137

PATIENT
  Age: 53 Year
  Sex: Male

DRUGS (2)
  1. PEG-INTRON [Suspect]
     Indication: HEPATITIS C
     Dates: end: 20051001
  2. REBETOL [Suspect]
     Indication: HEPATITIS C
     Dosage: PO
     Route: 048
     Dates: end: 20051001

REACTIONS (22)
  - BLISTER [None]
  - CHOLECYSTECTOMY [None]
  - CONFUSIONAL STATE [None]
  - DELUSION [None]
  - DISEASE RECURRENCE [None]
  - FATIGUE [None]
  - FEELING COLD [None]
  - FEELING HOT [None]
  - GALLBLADDER DISORDER [None]
  - HEADACHE [None]
  - HEART RATE DECREASED [None]
  - HEART RATE INCREASED [None]
  - HEPATITIS C [None]
  - HYPERMETROPIA [None]
  - MEMORY IMPAIRMENT [None]
  - NAUSEA [None]
  - PAIN [None]
  - RECTAL HAEMORRHAGE [None]
  - SUICIDE ATTEMPT [None]
  - THINKING ABNORMAL [None]
  - VISION BLURRED [None]
  - WEIGHT DECREASED [None]
